FAERS Safety Report 24875731 (Version 5)
Quarter: 2025Q3

REPORT INFORMATION
  Report Type: Spontaneous
  Country: CN (occurrence: CN)
  Receive Date: 20250122
  Receipt Date: 20250717
  Transmission Date: 20251020
  Serious: Yes (Hospitalization)
  Sender: JIANGSU HENGRUI
  Company Number: CN-JIANGSU HENGRUI PHARMACEUTICALS CO., LTD.-H2025001200363

PATIENT
  Age: 34 Year

DRUGS (23)
  1. PACLITAXEL [Suspect]
     Active Substance: PACLITAXEL
     Indication: Breast cancer stage IV
  2. PACLITAXEL [Suspect]
     Active Substance: PACLITAXEL
  3. PACLITAXEL [Suspect]
     Active Substance: PACLITAXEL
  4. PACLITAXEL [Suspect]
     Active Substance: PACLITAXEL
  5. PACLITAXEL [Suspect]
     Active Substance: PACLITAXEL
  6. PACLITAXEL [Suspect]
     Active Substance: PACLITAXEL
  7. PACLITAXEL [Suspect]
     Active Substance: PACLITAXEL
  8. PACLITAXEL [Suspect]
     Active Substance: PACLITAXEL
  9. PACLITAXEL [Suspect]
     Active Substance: PACLITAXEL
  10. PACLITAXEL [Suspect]
     Active Substance: PACLITAXEL
  11. PACLITAXEL [Suspect]
     Active Substance: PACLITAXEL
  12. PACLITAXEL [Suspect]
     Active Substance: PACLITAXEL
  13. PACLITAXEL [Suspect]
     Active Substance: PACLITAXEL
  14. PACLITAXEL [Suspect]
     Active Substance: PACLITAXEL
  15. PACLITAXEL [Suspect]
     Active Substance: PACLITAXEL
  16. PACLITAXEL [Suspect]
     Active Substance: PACLITAXEL
  17. PACLITAXEL [Suspect]
     Active Substance: PACLITAXEL
  18. PACLITAXEL [Suspect]
     Active Substance: PACLITAXEL
  19. PACLITAXEL [Suspect]
     Active Substance: PACLITAXEL
  20. PACLITAXEL [Suspect]
     Active Substance: PACLITAXEL
  21. PACLITAXEL [Suspect]
     Active Substance: PACLITAXEL
  22. LEUCOGEN [Concomitant]
     Active Substance: LEUCOGEN
     Indication: Prophylaxis
  23. PALONOSETRON HYDROCHLORIDE [Concomitant]
     Active Substance: PALONOSETRON HYDROCHLORIDE
     Indication: Prophylaxis

REACTIONS (1)
  - Urinary tract infection [Recovering/Resolving]
